FAERS Safety Report 16540972 (Version 3)
Quarter: 2019Q4

REPORT INFORMATION
  Report Type: Report from Study
  Country: UA (occurrence: UA)
  Receive Date: 20190708
  Receipt Date: 20191114
  Transmission Date: 20200122
  Serious: Yes (Life-Threatening, Hospitalization)
  Sender: FDA-Public Use
  Company Number: UA-BAYER-2019-127004

PATIENT
  Sex: Male
  Weight: 88 kg

DRUGS (32)
  1. SERATID [Concomitant]
     Indication: CHRONIC OBSTRUCTIVE PULMONARY DISEASE
     Dosage: UNK
     Route: 055
     Dates: start: 20160412
  2. BISOPROLOL [Concomitant]
     Active Substance: BISOPROLOL
     Indication: CARDIAC FAILURE CHRONIC
     Dosage: 2.5 MG
     Route: 048
     Dates: start: 20190327
  3. RITUXIMAB. [Suspect]
     Active Substance: RITUXIMAB
     Indication: B-CELL LYMPHOMA
     Dosage: 375 MG, Q4WK
     Route: 042
     Dates: start: 20190604, end: 20190604
  4. BENDAMUSTINE [Suspect]
     Active Substance: BENDAMUSTINE
     Indication: B-CELL LYMPHOMA
     Dosage: 194 MG, Q4WK
     Route: 042
     Dates: start: 20190508, end: 20190508
  5. CASPRIN [Concomitant]
     Indication: THROMBOSIS
     Dosage: 75 MG
     Route: 048
     Dates: start: 20190410
  6. COPANLISIB. [Suspect]
     Active Substance: COPANLISIB
     Indication: B-CELL LYMPHOMA
     Dosage: 60 MG
     Route: 042
     Dates: start: 20190611, end: 20190611
  7. COPANLISIB. [Suspect]
     Active Substance: COPANLISIB
     Indication: B-CELL LYMPHOMA
     Dosage: 60 MG
     Route: 042
     Dates: start: 20190806, end: 20190806
  8. COPANLISIB. [Suspect]
     Active Substance: COPANLISIB
     Indication: B-CELL LYMPHOMA
     Dosage: 60 MG
     Route: 042
     Dates: start: 20190827, end: 20190827
  9. RITUXIMAB. [Suspect]
     Active Substance: RITUXIMAB
     Indication: B-CELL LYMPHOMA
     Dosage: 806 MG, Q4WK
     Route: 042
     Dates: start: 20190507, end: 20190507
  10. BENDAMUSTINE [Suspect]
     Active Substance: BENDAMUSTINE
     Indication: B-CELL LYMPHOMA
     Dosage: 194 MG, Q4WK
     Route: 042
     Dates: start: 20190507, end: 20190507
  11. ATORIS [Concomitant]
     Active Substance: ATORVASTATIN CALCIUM
     Indication: CARDIOVASCULAR DISORDER
     Dosage: 20 MG
     Route: 048
     Dates: start: 20190410
  12. COPANLISIB. [Suspect]
     Active Substance: COPANLISIB
     Indication: B-CELL LYMPHOMA
     Dosage: 60 MG
     Route: 042
     Dates: start: 20190618, end: 20190618
  13. COPANLISIB. [Suspect]
     Active Substance: COPANLISIB
     Indication: B-CELL LYMPHOMA
     Dosage: 60 MG
     Route: 042
     Dates: start: 20190730, end: 20190730
  14. TENOFOVIR [Concomitant]
     Active Substance: TENOFOVIR
     Indication: HEPATITIS B
     Dosage: 100 MG
     Route: 048
     Dates: start: 20190507
  15. COPANLISIB. [Suspect]
     Active Substance: COPANLISIB
     Indication: B-CELL LYMPHOMA
     Dosage: 60 MG
     Route: 042
     Dates: start: 20190820, end: 20190820
  16. COPANLISIB. [Suspect]
     Active Substance: COPANLISIB
     Indication: B-CELL LYMPHOMA
     Dosage: 60 MG
     Route: 042
     Dates: start: 20190925, end: 20190925
  17. TELMISARTANA [Concomitant]
     Indication: HYPERTENSION
     Dosage: 40 MG
     Route: 048
     Dates: start: 20190327
  18. COPANLISIB. [Suspect]
     Active Substance: COPANLISIB
     Indication: B-CELL LYMPHOMA
     Dosage: 60 MG
     Route: 042
     Dates: start: 20190507, end: 20190507
  19. COPANLISIB. [Suspect]
     Active Substance: COPANLISIB
     Indication: B-CELL LYMPHOMA
     Dosage: 60 MG
     Route: 042
     Dates: start: 20190521, end: 20190521
  20. COPANLISIB. [Suspect]
     Active Substance: COPANLISIB
     Indication: B-CELL LYMPHOMA
     Dosage: 60 MG
     Route: 042
     Dates: start: 20190723, end: 20190723
  21. BENDAMUSTINE [Suspect]
     Active Substance: BENDAMUSTINE
     Indication: B-CELL LYMPHOMA
     Dosage: 90 MG, Q4WK
     Route: 042
     Dates: start: 20190605, end: 20190605
  22. CIPROFLOXACINUM [CIPROFLOXACIN] [Concomitant]
     Indication: PHARYNGITIS
     Dosage: 500 MG
     Route: 048
     Dates: start: 20190702
  23. COPANLISIB. [Suspect]
     Active Substance: COPANLISIB
     Indication: B-CELL LYMPHOMA
     Dosage: 60 MG
     Route: 042
     Dates: start: 20190917, end: 20190917
  24. BENDAMUSTINE [Suspect]
     Active Substance: BENDAMUSTINE
     Indication: B-CELL LYMPHOMA
     Dosage: 90 MG, Q4WK
     Route: 042
     Dates: start: 20190604, end: 20190604
  25. DEXAMETHASONE. [Concomitant]
     Active Substance: DEXAMETHASONE
     Indication: PREMEDICATION
     Dosage: 8 MG
     Route: 042
     Dates: start: 20190507
  26. COPANLISIB. [Suspect]
     Active Substance: COPANLISIB
     Indication: B-CELL LYMPHOMA
     Dosage: 60 MG
     Route: 042
     Dates: start: 20190514, end: 20190514
  27. COPANLISIB. [Suspect]
     Active Substance: COPANLISIB
     Indication: B-CELL LYMPHOMA
     Dosage: 60 MG
     Route: 042
     Dates: start: 20190604, end: 20190604
  28. COPANLISIB. [Suspect]
     Active Substance: COPANLISIB
     Indication: B-CELL LYMPHOMA
     Dosage: 60 MG
     Route: 042
     Dates: start: 20190903, end: 20190903
  29. COPANLISIB. [Suspect]
     Active Substance: COPANLISIB
     Indication: B-CELL LYMPHOMA
     Dosage: 60 MG
     Route: 042
     Dates: start: 20191001, end: 20191001
  30. COPANLISIB. [Suspect]
     Active Substance: COPANLISIB
     Indication: B-CELL LYMPHOMA
     Dosage: 60 MG
     Route: 042
     Dates: start: 20191016, end: 20191016
  31. ALLOPURINOL. [Concomitant]
     Active Substance: ALLOPURINOL
     Indication: TUMOUR LYSIS SYNDROME
     Dosage: 0.1 G
     Route: 048
  32. ACICLOVIR [Concomitant]
     Active Substance: ACYCLOVIR
     Indication: HERPES VIRUS INFECTION
     Dosage: 500 MG
     Route: 048
     Dates: start: 20190507

REACTIONS (1)
  - Cytomegalovirus infection [Recovered/Resolved]

NARRATIVE: CASE EVENT DATE: 20190704
